FAERS Safety Report 9340979 (Version 2)
Quarter: 2014Q3

REPORT INFORMATION
  Report Type: Report from Study
  Country: US (occurrence: US)
  Receive Date: 20130610
  Receipt Date: 20140702
  Transmission Date: 20150326
  Serious: Yes (Hospitalization, Disabling, Other)
  Sender: FDA-Public Use
  Company Number: US-US-EMD SERONO, INC.-7215508

PATIENT
  Age: 7 Year
  Sex: Female
  Weight: 44 kg

DRUGS (5)
  1. SAIZEN [Suspect]
     Active Substance: SOMATROPIN
  2. SAIZEN [Suspect]
     Active Substance: SOMATROPIN
     Dates: start: 201212
  3. SAIZEN [Suspect]
     Active Substance: SOMATROPIN
  4. VITAMIN D                          /00107901/ [Concomitant]
     Active Substance: ERGOCALCIFEROL
     Indication: VITAMIN D ABNORMAL
  5. SAIZEN [Suspect]
     Active Substance: SOMATROPIN
     Indication: TURNER^S SYNDROME
     Dates: start: 20090517

REACTIONS (6)
  - Pyelocaliectasis [Recovered/Resolved]
  - Cellulitis [Unknown]
  - Paronychia [Not Recovered/Not Resolved]
  - Oedema peripheral [Unknown]
  - Deafness [Recovering/Resolving]
  - Peripheral swelling [Not Recovered/Not Resolved]

NARRATIVE: CASE EVENT DATE: 20101026
